FAERS Safety Report 9285038 (Version 1)
Quarter: 2013Q2

REPORT INFORMATION
  Report Type: Report from Study
  Country: US (occurrence: US)
  Receive Date: 20130513
  Receipt Date: 20130513
  Transmission Date: 20140414
  Serious: Yes (Hospitalization)
  Sender: FDA-Public Use
  Company Number: US-GENZYME-LEUK-1000350

PATIENT
  Age: 52 Year
  Sex: Female
  Weight: 59.8 kg

DRUGS (6)
  1. LEUKINE [Suspect]
     Indication: MALIGNANT MELANOMA
     Dosage: 250 MCG, QD ON DAYS 1-14, CYCLE 1
     Route: 058
     Dates: start: 20110725
  2. LEUKINE [Suspect]
     Dosage: 250 MCG, QD CYCLE 2; TOTAL DOSE 3500 MCG
     Route: 058
     Dates: start: 20110815, end: 20110828
  3. LEUKINE [Suspect]
     Dosage: 250 MCG, QD, CYCLE 3; TOTAL DOSE 500
     Route: 058
     Dates: start: 20110906, end: 20110907
  4. IPILIMUMAB [Suspect]
     Indication: MALIGNANT MELANOMA
     Dosage: 10 MG/KG, IV OVER 90 MIN ON DAY 1, CYCLE1
     Route: 042
     Dates: start: 20110725
  5. IPILIMUMAB [Suspect]
     Dosage: 10 MG/KG, IV OVER 90 MIN ON DAY 1 CYCLE 2, TOTAL DOSE 600 MG
     Route: 042
     Dates: start: 20110815, end: 20110815
  6. IPILIMUMAB [Suspect]
     Dosage: 10 MG/KG, IV OVER 90 MIN ON DAY 1, CYCLE 3, TOTAL DOSE 600 MG
     Route: 042
     Dates: start: 20110906, end: 20110906

REACTIONS (14)
  - Colitis [Not Recovered/Not Resolved]
  - Hypokalaemia [Recovered/Resolved]
  - Pyrexia [Unknown]
  - Syncope [Recovered/Resolved]
  - Diarrhoea [Unknown]
  - Hypocalcaemia [Unknown]
  - Hyperkalaemia [Unknown]
  - Injection site reaction [Recovered/Resolved]
  - Blood creatinine increased [Unknown]
  - Ileus [Unknown]
  - Small intestinal obstruction [Unknown]
  - Anaemia [Unknown]
  - Constipation [Recovered/Resolved]
  - Weight decreased [Unknown]
